FAERS Safety Report 4450056-5 (Version None)
Quarter: 2004Q3

REPORT INFORMATION
  Report Type: 
  Country: None (occurrence: None)
  Receive Date: 20040910
  Receipt Date: 20040517
  Transmission Date: 20050211
  Serious: Yes (Other)
  Sender: FDA-Public Use
  Company Number: S04-USA-02763-01

PATIENT
  Age: 17 Year
  Sex: Female

DRUGS (6)
  1. LEXAPRO [Suspect]
     Indication: DEPRESSION
     Dates: start: 20040511, end: 20040511
  2. LEXAPRO [Suspect]
     Indication: DEPRESSION
     Dosage: 10 MG QD PO
     Route: 048
     Dates: start: 20030722
  3. TRAZODONE [Suspect]
     Indication: SOMNOLENCE
     Dosage: 150 MG ONCE
     Dates: start: 20040511, end: 20040511
  4. TRAZODONE [Suspect]
     Indication: SOMNOLENCE
     Dates: end: 20040501
  5. DEPAKOTE [Concomitant]
  6. SEROQUEL [Concomitant]

REACTIONS (3)
  - LETHARGY [None]
  - MULTIPLE DRUG OVERDOSE INTENTIONAL [None]
  - SUICIDE ATTEMPT [None]
